FAERS Safety Report 5634188-1 (Version None)
Quarter: 2008Q1

REPORT INFORMATION
  Report Type: 
  Country: None (occurrence: None)
  Receive Date: 20080219
  Receipt Date: 20080204
  Transmission Date: 20080703
  Serious: Yes (Hospitalization)
  Sender: FDA-Public Use
  Company Number: A-JP2007-16795

PATIENT
  Age: 18 Year
  Sex: Female
  Weight: 39 kg

DRUGS (9)
  1. TRACLEER [Suspect]
     Indication: PULMONARY HYPERTENSION
     Dosage: SEE IMAGE
     Route: 048
     Dates: start: 20060731, end: 20060921
  2. TRACLEER [Suspect]
     Indication: PULMONARY HYPERTENSION
     Dosage: SEE IMAGE
     Route: 048
     Dates: start: 20060922, end: 20070115
  3. TRACLEER [Suspect]
     Indication: PULMONARY HYPERTENSION
     Dosage: SEE IMAGE
     Route: 048
     Dates: start: 20070120, end: 20070205
  4. TRACLEER [Suspect]
     Indication: PULMONARY HYPERTENSION
     Dosage: SEE IMAGE
     Route: 048
     Dates: start: 20070217, end: 20070221
  5. TRACLEER [Suspect]
     Indication: PULMONARY HYPERTENSION
     Dosage: SEE IMAGE
     Route: 048
     Dates: start: 20070222, end: 20070306
  6. TRACLEER [Suspect]
     Indication: PULMONARY HYPERTENSION
     Dosage: SEE IMAGE
     Route: 048
     Dates: start: 20070307, end: 20070626
  7. BERAPROST SODIUM(BERAPROST SODIUM) [Suspect]
  8. DIGOXIN [Concomitant]
  9. OXYGEN (OXYGEN) [Concomitant]

REACTIONS (2)
  - PULMONARY HAEMORRHAGE [None]
  - VASCULAR PSEUDOANEURYSM [None]
